FAERS Safety Report 6566617-3 (Version None)
Quarter: 2010Q1

REPORT INFORMATION
  Report Type: 
  Country: None (occurrence: None)
  Receive Date: 20100202
  Receipt Date: 20100121
  Transmission Date: 20100710
  Serious: Yes (Death, Hospitalization)
  Sender: FDA-Public Use
  Company Number: BR-ROCHE-651937

PATIENT
  Age: 45 Year
  Sex: Male
  Weight: 65 kg

DRUGS (3)
  1. TOCILIZUMAB [Suspect]
     Dosage: FORM: INFUSION, FREQUENCY: ONE SINGLE INFUSION
     Route: 042
     Dates: start: 20090614
  2. PREDNISONE [Concomitant]
  3. TYLEX [Concomitant]
     Indication: PAIN

REACTIONS (3)
  - GENERALISED OEDEMA [None]
  - MULTI-ORGAN FAILURE [None]
  - PAIN [None]
